FAERS Safety Report 7199766-X (Version None)
Quarter: 2010Q4

REPORT INFORMATION
  Report Type: 
  Country: None (occurrence: None)
  Receive Date: 20101228
  Receipt Date: 20101220
  Transmission Date: 20110411
  Serious: Yes (Other)
  Sender: FDA-Public Use
  Company Number: US-JNJFOC-20101207491

PATIENT
  Sex: Female
  Weight: 58.97 kg

DRUGS (9)
  1. FENTANYL-100 [Suspect]
     Indication: INTERVERTEBRAL DISC PROTRUSION
     Route: 062
  2. FENTANYL-100 [Suspect]
     Indication: FIBROMYALGIA
     Route: 062
  3. FENTANYL-100 [Suspect]
     Indication: RHEUMATOID ARTHRITIS
     Route: 062
  4. FENTANYL-100 [Suspect]
     Indication: SYSTEMIC LUPUS ERYTHEMATOSUS
     Route: 062
  5. FENTANYL-100 [Suspect]
     Dosage: NDC#0781-7243-55
     Route: 062
  6. FENTANYL-100 [Suspect]
     Dosage: NDC#0781-7243-55
     Route: 062
  7. FENTANYL-100 [Suspect]
     Dosage: NDC#0781-7243-55
     Route: 062
  8. FENTANYL-100 [Suspect]
     Dosage: NDC#0781-7243-55
     Route: 062
  9. ZOLOFT [Concomitant]
     Indication: DEPRESSION
     Route: 048

REACTIONS (5)
  - BLADDER NEOPLASM [None]
  - DYSGEUSIA [None]
  - DYSPNOEA [None]
  - HYPOTHYROIDISM [None]
  - PRODUCT QUALITY ISSUE [None]
